FAERS Safety Report 15466500 (Version 1)
Quarter: 2018Q4

REPORT INFORMATION
  Report Type: Other
  Country: US (occurrence: US)
  Receive Date: 20181004
  Receipt Date: 20181004
  Transmission Date: 20190204
  Serious: No
  Sender: FDA-Public Use
  Company Number: US-ALEMBIC PHARMACUETICALS LIMITED-2018SCAL000703

PATIENT

DRUGS (1)
  1. LAMOTRIGINE. [Suspect]
     Active Substance: LAMOTRIGINE
     Indication: PRODUCT USED FOR UNKNOWN INDICATION
     Dosage: 150 MILLIGRAM

REACTIONS (9)
  - Fatigue [Unknown]
  - Tension headache [Unknown]
  - Influenza like illness [Unknown]
  - Headache [Unknown]
  - Hypoaesthesia oral [Unknown]
  - Vision blurred [Unknown]
  - Lip dry [Unknown]
  - Decreased appetite [Unknown]
  - Dizziness [Unknown]
